FAERS Safety Report 5448616-8 (Version None)
Quarter: 2007Q3

REPORT INFORMATION
  Report Type: 
  Country: None (occurrence: None)
  Receive Date: 20070906
  Receipt Date: 20070906
  Transmission Date: 20080115
  Serious: No
  Sender: FDA-Public Use
  Company Number: None

PATIENT
  Age: 44 Year
  Sex: Female
  Weight: 63.5036 kg

DRUGS (2)
  1. BUPROPION HCL [Suspect]
     Indication: MENOPAUSAL SYMPTOMS
     Dosage: 300 MG ONCE A DAY PO
     Route: 048
     Dates: start: 20070115, end: 20070901
  2. WELLBUTRIN [Suspect]

REACTIONS (8)
  - CHEST DISCOMFORT [None]
  - DEPRESSION [None]
  - DYSPNOEA [None]
  - GENERALISED ANXIETY DISORDER [None]
  - HEADACHE [None]
  - SEXUAL DYSFUNCTION [None]
  - THERAPEUTIC RESPONSE UNEXPECTED WITH DRUG SUBSTITUTION [None]
  - WEIGHT INCREASED [None]
